FAERS Safety Report 8875704 (Version 4)
Quarter: 2013Q1

REPORT INFORMATION
  Report Type: Report from Study
  Country: US (occurrence: US)
  Receive Date: 20121030
  Receipt Date: 20130103
  Transmission Date: 20140127
  Serious: Yes (Death, Hospitalization, Other)
  Sender: FDA-Public Use
  Company Number: US-BAYER-2012-106282

PATIENT
  Age: 47 Year
  Sex: Female

DRUGS (2)
  1. STIVARGA [Suspect]
     Indication: COLON CANCER
     Dosage: 40 MG, QID
     Route: 048
     Dates: start: 20121006, end: 20121027
  2. STIVARGA [Suspect]
     Indication: COLON CANCER
     Dosage: 40 MG, QID
     Route: 048
     Dates: end: 201212

REACTIONS (20)
  - Colon cancer [Fatal]
  - Sepsis [Recovering/Resolving]
  - Ascites [Not Recovered/Not Resolved]
  - Thrombosis [Not Recovered/Not Resolved]
  - Aspartate aminotransferase increased [Unknown]
  - Heart rate increased [Recovering/Resolving]
  - Peritonitis [Unknown]
  - Blood magnesium decreased [Unknown]
  - Hypertension [Not Recovered/Not Resolved]
  - Pyrexia [Unknown]
  - Cough [Not Recovered/Not Resolved]
  - Arthralgia [None]
  - Local swelling [None]
  - Erythema [None]
  - Dry skin [Not Recovered/Not Resolved]
  - Burning sensation [Recovering/Resolving]
  - Palmar-plantar erythrodysaesthesia syndrome [Recovering/Resolving]
  - Rash [Recovering/Resolving]
  - Ovarian cyst [Not Recovered/Not Resolved]
  - Oedema peripheral [Not Recovered/Not Resolved]
